FAERS Safety Report 10687534 (Version 2)
Quarter: 2015Q1

REPORT INFORMATION
  Report Type: Report from Study
  Country: US (occurrence: None)
  Receive Date: 20141230
  Receipt Date: 20150108
  Transmission Date: 20150720
  Serious: Yes (Death, Hospitalization)
  Sender: FDA-Public Use
  Company Number: 201412IM008166

PATIENT
  Age: 75 Year
  Sex: Female

DRUGS (13)
  1. OCCUVITE [Concomitant]
  2. ESBRIET [Suspect]
     Active Substance: PIRFENIDONE
     Indication: IDIOPATHIC PULMONARY FIBROSIS
     Route: 048
     Dates: start: 201402
  3. IMIPRAMINE [Concomitant]
     Active Substance: IMIPRAMINE
  4. VITAMIN D [Concomitant]
     Active Substance: CHOLECALCIFEROL
  5. LEXAPRO [Concomitant]
     Active Substance: ESCITALOPRAM OXALATE
  6. ASPIRIN. [Concomitant]
     Active Substance: ASPIRIN
  7. DETROL [Concomitant]
     Active Substance: TOLTERODINE TARTRATE
  8. SINGULAIR [Concomitant]
     Active Substance: MONTELUKAST SODIUM
  9. OMEPRAZOLE. [Concomitant]
     Active Substance: OMEPRAZOLE
  10. TIMOLOL [Concomitant]
     Active Substance: TIMOLOL
  11. CALCIUM [Concomitant]
     Active Substance: CALCIUM
  12. XALATAN [Concomitant]
     Active Substance: LATANOPROST
  13. CRESTOR [Concomitant]
     Active Substance: ROSUVASTATIN CALCIUM

REACTIONS (1)
  - Hospitalisation [None]

NARRATIVE: CASE EVENT DATE: 20141216
